FAERS Safety Report 25302318 (Version 1)
Quarter: 2025Q2

REPORT INFORMATION
  Report Type: Spontaneous
  Country: CN (occurrence: CN)
  Receive Date: 20250512
  Receipt Date: 20250512
  Transmission Date: 20250716
  Serious: Yes (Other)
  Sender: MERCK SHARP & DOHME LLC
  Company Number: CN-009507513-2283916

PATIENT
  Age: 51 Year
  Sex: Female

DRUGS (3)
  1. EMEND [Suspect]
     Active Substance: APREPITANT
     Route: 048
     Dates: start: 20241002, end: 20241021
  2. RAFUTROMBOPAG OLAMINE [Suspect]
     Active Substance: RAFUTROMBOPAG OLAMINE
     Indication: Lung neoplasm malignant
     Route: 048
     Dates: start: 20241021, end: 20241021
  3. ADO-TRASTUZUMAB EMTANSINE [Concomitant]
     Active Substance: ADO-TRASTUZUMAB EMTANSINE
     Indication: Lung neoplasm malignant
     Dates: start: 20241021

REACTIONS (1)
  - Myelosuppression [Recovering/Resolving]

NARRATIVE: CASE EVENT DATE: 20241021
